FAERS Safety Report 10643189 (Version 1)
Quarter: 2014Q4

REPORT INFORMATION
  Report Type: Spontaneous
  Country: US (occurrence: None)
  Receive Date: 20141121
  Receipt Date: 20141121
  Transmission Date: 20150529
  Serious: No
  Sender: FDA-Public Use
  Company Number: 163-10004-14082382

PATIENT
  Age: 72 Year
  Sex: Male

DRUGS (9)
  1. OTEZLA [Suspect]
     Active Substance: APREMILAST
     Indication: PSORIATIC ARTHROPATHY
     Route: 048
     Dates: start: 20140728
  2. METOPROLOL TARTRATE(METOPROLOL TARTRATE) [Concomitant]
  3. SPIRIVA HANDIHALER(TIOTROPIUM BROMIDE) [Concomitant]
  4. ASPIRIN(ACETYLSALICYLIC ACID) [Concomitant]
     Active Substance: ASPIRIN
  5. GLIMEPIRIDE(GLIMEPIRIDE) [Concomitant]
  6. SPIRONOLACTONE(SPIRONOLACTONE) [Concomitant]
  7. LEVOTHYROXINE SODIUM(LEVOTHYROXINE SODIUM) [Concomitant]
  8. LOSARTAN POTASSIUM (LOSRTAN POTASSIUM) [Concomitant]
  9. ATORVASTATIN CALCIUM (ATORVASTATIN CALCIUM) [Concomitant]
     Active Substance: ATORVASTATIN CALCIUM

REACTIONS (3)
  - Weight decreased [None]
  - Abdominal pain upper [None]
  - Diarrhoea [None]

NARRATIVE: CASE EVENT DATE: 2014
